FAERS Safety Report 6731720-1 (Version None)
Quarter: 2010Q2

REPORT INFORMATION
  Report Type: 
  Country: None (occurrence: None)
  Receive Date: 20100518
  Receipt Date: 20100518
  Transmission Date: 20101027
  Serious: No
  Sender: FDA-Public Use
  Company Number: None

PATIENT
  Sex: Male
  Weight: 76.5 kg

DRUGS (6)
  1. PEG-L ASPARAGINASE (PEGASPARGASE, ONCOSPAR) [Suspect]
     Dosage: 9525 MG
     Dates: end: 20100412
  2. VINCRISTINE SULFATE [Suspect]
     Dosage: 8 MG
     Dates: end: 20100419
  3. CYCLOPHOSPHAMIDE [Suspect]
     Dosage: 3770 MG
     Dates: end: 20100329
  4. CYTARABINE [Suspect]
     Dosage: 1688 MG
     Dates: end: 20100401
  5. MERCAPTOPURINE [Suspect]
     Dosage: 1600 MG
     Dates: end: 20100411
  6. METHOTREXATE [Suspect]
     Dosage: 60 MG
     Dates: end: 20100412

REACTIONS (1)
  - HYPERGLYCAEMIA [None]
